FAERS Safety Report 10881697 (Version 1)
Quarter: 2015Q1

REPORT INFORMATION
  Report Type: Spontaneous
  Country: US (occurrence: None)
  Receive Date: 20150226
  Receipt Date: 20150226
  Transmission Date: 20150721
  Serious: Yes (Life-Threatening, Other)
  Sender: FDA-Public Use
  Company Number: None

PATIENT
  Age: 77 Year
  Sex: Male

DRUGS (5)
  1. ATORVASTATIN [Suspect]
     Active Substance: ATORVASTATIN
     Indication: BLOOD CHOLESTEROL
     Dosage: 40 MG 1 PILL AT BEDTIME BY MOUTH; REF # 15014583797019999
     Route: 048
     Dates: end: 20150131
  2. D3 [Concomitant]
     Active Substance: 25-HYDROXYCHOLECALCIFEROL, 5-TRANS-
  3. VITAMIN C [Concomitant]
     Active Substance: ASCORBIC ACID
  4. RANEXA [Concomitant]
     Active Substance: RANOLAZINE
  5. VITAMIN B12 [Concomitant]
     Active Substance: CYANOCOBALAMIN

REACTIONS (7)
  - Arthralgia [None]
  - Gait disturbance [None]
  - Pain in extremity [None]
  - Speech disorder [None]
  - Visual impairment [None]
  - Myalgia [None]
  - Amnesia [None]

NARRATIVE: CASE EVENT DATE: 20150131
